FAERS Safety Report 15930173 (Version 1)
Quarter: 2019Q1

REPORT INFORMATION
  Report Type: Spontaneous
  Country: PL (occurrence: PL)
  Receive Date: 20190206
  Receipt Date: 20190206
  Transmission Date: 20190417
  Serious: Yes (Other)
  Sender: FDA-Public Use
  Company Number: PL-BAXTER-2019BAX002903

PATIENT
  Age: 61 Year
  Sex: Female

DRUGS (5)
  1. CIPROFLOXACINUM CLARIS, 2 MG/ML, ROZTW?R DO INFUZJI [Suspect]
     Active Substance: CIPROFLOXACIN LACTATE
     Indication: ENDOCARDITIS
     Route: 065
  2. CEFTRIAXONE. [Suspect]
     Active Substance: CEFTRIAXONE
     Indication: ENDOCARDITIS
     Route: 065
  3. VANCOMYCIN [Suspect]
     Active Substance: VANCOMYCIN
     Indication: ENDOCARDITIS
     Route: 065
  4. FLUKONAZOL ROZTW?R DO INFUZJI 2MG/ML [Suspect]
     Active Substance: FLUCONAZOLE
     Indication: ENDOCARDITIS
     Route: 065
  5. LEVOFLOXACIN. [Suspect]
     Active Substance: LEVOFLOXACIN
     Indication: ENDOCARDITIS
     Route: 065

REACTIONS (1)
  - Drug ineffective [Unknown]
